FAERS Safety Report 10209181 (Version 1)
Quarter: 2014Q2

REPORT INFORMATION
  Report Type: Report from Study
  Country: CO (occurrence: CO)
  Receive Date: 20140530
  Receipt Date: 20140530
  Transmission Date: 20141212
  Serious: Yes (Hospitalization, Other)
  Sender: FDA-Public Use
  Company Number: CO-ABBVIE-14P-036-1243227-00

PATIENT
  Age: 44 Year
  Sex: Female
  Weight: 50 kg

DRUGS (5)
  1. HUMIRA [Suspect]
     Indication: RHEUMATOID ARTHRITIS
     Route: 058
     Dates: start: 20081106, end: 20140411
  2. PREDNISOLONE [Concomitant]
     Indication: PRODUCT USED FOR UNKNOWN INDICATION
  3. OMEPRAZOLE [Concomitant]
     Indication: PRODUCT USED FOR UNKNOWN INDICATION
  4. SULFASALAZINE [Concomitant]
     Indication: PRODUCT USED FOR UNKNOWN INDICATION
  5. PREGABALIN [Concomitant]
     Indication: PRODUCT USED FOR UNKNOWN INDICATION

REACTIONS (6)
  - Inflammation [Recovering/Resolving]
  - Pain in extremity [Recovering/Resolving]
  - Musculoskeletal stiffness [Recovering/Resolving]
  - Mobility decreased [Recovering/Resolving]
  - Fibromyalgia [Recovering/Resolving]
  - Drug ineffective [Recovering/Resolving]
